FAERS Safety Report 4698634-2 (Version None)
Quarter: 2005Q2

REPORT INFORMATION
  Report Type: 
  Country: None (occurrence: None)
  Receive Date: 20050622
  Receipt Date: 20050606
  Transmission Date: 20051028
  Serious: Yes (Other)
  Sender: FDA-Public Use
  Company Number: 26795

PATIENT
  Age: 58 Year
  Sex: Male

DRUGS (9)
  1. ALDARA [Suspect]
     Indication: ACTINIC KERATOSIS
     Dosage: 1 SACHET, 3 IN 1 WEEK (S), TOPICAL
     Route: 061
     Dates: start: 20050507, end: 20050515
  2. ASCORBIC ACID [Concomitant]
  3. CLARITIN [Concomitant]
  4. FIBERCON [Concomitant]
  5. LISINOPRIL [Concomitant]
  6. SINGULAIR [Concomitant]
  7. LOVASTATIN [Concomitant]
  8. ATARAX [Concomitant]
  9. ASPIRIN [Concomitant]

REACTIONS (7)
  - ABDOMINAL PAIN [None]
  - ERYTHEMA MULTIFORME [None]
  - INFLUENZA LIKE ILLNESS [None]
  - MOUTH ULCERATION [None]
  - NAUSEA [None]
  - PYREXIA [None]
  - URTICARIA [None]
